FAERS Safety Report 9032279 (Version 1)
Quarter: 2013Q1

REPORT INFORMATION
  Report Type: Spontaneous
  Country: BR (occurrence: BR)
  Receive Date: 20130122
  Receipt Date: 20130122
  Transmission Date: 20140127
  Serious: Yes (Other)
  Sender: FDA-Public Use
  Company Number: BR-AMGEN-BRACT2011007489

PATIENT
  Age: 53 Year
  Sex: Female
  Weight: 68 kg

DRUGS (9)
  1. ENBREL [Suspect]
     Indication: RHEUMATOID ARTHRITIS
     Dosage: 50 MG, ONCE A WEEK
     Route: 058
     Dates: start: 200809
  2. ENBREL [Suspect]
     Dosage: 25 MG, 2X/WEEK, POWDER AND SOLVENT FOR SOLUTION
     Route: 058
     Dates: start: 20081028, end: 20100901
  3. ENBREL [Suspect]
     Dosage: 50 MG, WEEKLY
     Route: 058
     Dates: start: 201207
  4. ENBREL [Suspect]
     Dosage: ONCE WEEKLY
     Route: 058
  5. CAPOTEN [Concomitant]
     Indication: HYPERTENSION
     Dosage: 25 MG, 1X/DAY
  6. BENZETACIL                         /00000904/ [Concomitant]
     Indication: TOOTH DISORDER
     Dosage: ONLY ONCE
  7. PREDSIM [Concomitant]
     Dosage: UNK
  8. METHOTREXATE [Concomitant]
     Dosage: UNK
  9. CALCIUM [Concomitant]
     Dosage: UNK

REACTIONS (8)
  - Rash macular [Unknown]
  - Hypersensitivity [Unknown]
  - Inflammation [Unknown]
  - Pain in extremity [Recovered/Resolved]
  - Gait disturbance [Unknown]
  - Sinusitis [Unknown]
  - Urinary tract infection [Unknown]
  - Injection site pain [Unknown]
